FAERS Safety Report 9756783 (Version 1)
Quarter: 2013Q4

REPORT INFORMATION
  Report Type: Spontaneous
  Country: FR (occurrence: FR)
  Receive Date: 20131213
  Receipt Date: 20131213
  Transmission Date: 20140711
  Serious: Yes (Disabling)
  Sender: FDA-Public Use
  Company Number: FR-EISAI INC-E7389-04529-SPO-FR

PATIENT
  Age: 79 Year
  Sex: Female

DRUGS (3)
  1. HALAVEN [Suspect]
     Indication: BREAST CANCER METASTATIC
     Route: 041
     Dates: start: 20130628, end: 20130704
  2. ONDANSETRON [Suspect]
     Indication: PREMEDICATION
     Route: 042
     Dates: start: 20130628, end: 20130704
  3. METHYLPREDNISOLONE [Suspect]
     Indication: PREMEDICATION
     Route: 042
     Dates: start: 20130628, end: 20130704

REACTIONS (1)
  - Ischaemic stroke [Recovered/Resolved with Sequelae]
